FAERS Safety Report 23860241 (Version 2)
Quarter: 2024Q2

REPORT INFORMATION
  Report Type: Report from Study
  Country: CA (occurrence: CA)
  Receive Date: 20240515
  Receipt Date: 20240610
  Transmission Date: 20240716
  Serious: Yes (Other)
  Sender: FDA-Public Use
  Company Number: CA-JNJFOC-20240232796

PATIENT
  Age: 28 Year
  Sex: Female
  Weight: 75 kg

DRUGS (2)
  1. REMICADE [Suspect]
     Active Substance: INFLIXIMAB
     Indication: Colitis ulcerative
     Route: 041
     Dates: start: 20191120
  2. REMICADE [Suspect]
     Active Substance: INFLIXIMAB
     Route: 041
     Dates: start: 20220623

REACTIONS (11)
  - Placenta praevia [Recovering/Resolving]
  - Uterine haematoma [Unknown]
  - Haematochezia [Unknown]
  - Influenza [Recovering/Resolving]
  - Frequent bowel movements [Unknown]
  - Migraine [Not Recovered/Not Resolved]
  - Faeces hard [Recovering/Resolving]
  - Nausea [Unknown]
  - Thirst [Unknown]
  - Abdominal pain [Recovered/Resolved]
  - Exposure during pregnancy [Not Recovered/Not Resolved]

NARRATIVE: CASE EVENT DATE: 20230201
